FAERS Safety Report 4770712-9 (Version None)
Quarter: 2005Q3

REPORT INFORMATION
  Report Type: 
  Country: None (occurrence: None)
  Receive Date: 20050915
  Receipt Date: 20050912
  Transmission Date: 20060218
  Serious: Yes (Death)
  Sender: FDA-Public Use
  Company Number: 2005CG01518

PATIENT
  Age: 68 Year
  Sex: Male

DRUGS (7)
  1. OMEPRAZOLE [Suspect]
     Route: 048
     Dates: start: 20050101, end: 20050810
  2. CEBUTID [Suspect]
     Route: 048
     Dates: start: 20050606, end: 20050810
  3. DEPAKENE [Suspect]
     Route: 048
     Dates: start: 20050606, end: 20050810
  4. ZOCOR [Suspect]
     Route: 048
     Dates: start: 20050601, end: 20050810
  5. CELECTOL [Concomitant]
     Dates: end: 20050810
  6. TRIATEC [Concomitant]
     Dates: end: 20050810
  7. VASTAREL [Concomitant]
     Dates: end: 20050810

REACTIONS (14)
  - ALANINE AMINOTRANSFERASE INCREASED [None]
  - ANOREXIA [None]
  - ASPARTATE AMINOTRANSFERASE INCREASED [None]
  - ASTHENIA [None]
  - BLOOD ALKALINE PHOSPHATASE INCREASED [None]
  - BLOOD BILIRUBIN INCREASED [None]
  - BLOOD CREATININE INCREASED [None]
  - CONFUSIONAL STATE [None]
  - DIALYSIS [None]
  - HYPERSENSITIVITY [None]
  - MULTI-ORGAN FAILURE [None]
  - PYREXIA [None]
  - TOXIC SKIN ERUPTION [None]
  - VOMITING [None]
